FAERS Safety Report 10230059 (Version 1)
Quarter: 2014Q2

REPORT INFORMATION
  Report Type: Spontaneous
  Country: IT (occurrence: None)
  Receive Date: 20140609
  Receipt Date: 20140609
  Transmission Date: 20141212
  Serious: Yes (Hospitalization)
  Sender: FDA-Public Use
  Company Number: IMP_07640_2014

PATIENT
  Age: 72 Year
  Sex: Male

DRUGS (1)
  1. VALPROIC ACID (VALPROIC ACID) [Suspect]
     Indication: MENTAL DISORDER
     Dosage: 60 G 1X   [NOT PRESCRIBED AMOUNT], (DF)

REACTIONS (10)
  - Ventricular tachycardia [None]
  - Miosis [None]
  - Dehydration [None]
  - Hyporeflexia [None]
  - Hyperammonaemia [None]
  - Hypokalaemia [None]
  - Electrocardiogram QT prolonged [None]
  - Depressed level of consciousness [None]
  - Thrombocytopenia neonatal [None]
  - Toxicity to various agents [None]
